FAERS Safety Report 7350044-5 (Version None)
Quarter: 2011Q1

REPORT INFORMATION
  Report Type: 
  Country: None (occurrence: None)
  Receive Date: 20110314
  Receipt Date: 20110308
  Transmission Date: 20110831
  Serious: Yes (Hospitalization, Other)
  Sender: FDA-Public Use
  Company Number: JP-BRACCO-004585

PATIENT
  Age: 75 Year
  Sex: Male

DRUGS (1)
  1. IOPAMIDOL [Suspect]
     Indication: ANGIOGRAM
     Route: 042
     Dates: start: 20110225, end: 20110225

REACTIONS (3)
  - CEREBRAL INFARCTION [None]
  - MEMORY IMPAIRMENT [None]
  - AMNESIA [None]
